FAERS Safety Report 8008675-5 (Version None)
Quarter: 2011Q4

REPORT INFORMATION
  Report Type: 
  Country: None (occurrence: None)
  Receive Date: 20111227
  Receipt Date: 20111214
  Transmission Date: 20120403
  Serious: Yes (Hospitalization)
  Sender: FDA-Public Use
  Company Number: JP-MERCK-1112USA01104

PATIENT
  Age: 67 Year
  Sex: Female
  Weight: 53 kg

DRUGS (13)
  1. FOSAMAX [Suspect]
     Route: 048
  2. PREDNISOLONE [Suspect]
     Dosage: DIVIDED DOSE FREQUENCY U
     Route: 048
  3. OMEPRAZOLE [Concomitant]
     Dosage: DIVIDED DOSE FREQUENCY U
     Route: 048
  4. HALCION [Concomitant]
     Dosage: DIVIDED DOSE FREQUENCY U
     Route: 048
  5. SOLDOL E [Concomitant]
     Dosage: DIVIDED DOSE FREQUENCY U
     Route: 048
  6. DESYREL [Concomitant]
     Dosage: DIVIDED DOSE FREQUENCY U
     Route: 048
  7. OLMESARTAN MEDOXOMIL [Concomitant]
     Dosage: DIVIDED DOSE FREQUENCY U
     Route: 048
  8. FOLIC ACID [Concomitant]
     Dosage: DIVIDED DOSE FREQUENCY U
     Route: 048
  9. CONIEL [Concomitant]
     Dosage: DIVIDED DOSE FREQUENCY U
     Route: 048
  10. GABAPENTIN [Concomitant]
     Dosage: DIVIDED DOSE FREQUENCY U
     Route: 048
  11. CORTICOSTEROIDS (UNSPECIFIED) [Suspect]
     Indication: RHEUMATOID ARTHRITIS
     Route: 065
  12. RHEUMATREX [Concomitant]
     Route: 048
  13. ASPIRIN [Concomitant]
     Dosage: DIVIDED DOSE FREQUENCY U
     Route: 048

REACTIONS (3)
  - BONE DISORDER [None]
  - FEMUR FRACTURE [None]
  - ADVERSE EVENT [None]
